FAERS Safety Report 18697794 (Version 2)
Quarter: 2021Q1

REPORT INFORMATION
  Report Type: Spontaneous
  Country: PR (occurrence: PR)
  Receive Date: 20210104
  Receipt Date: 20210105
  Transmission Date: 20210419
  Serious: Yes (Life-Threatening, Hospitalization, Other)
  Sender: FDA-Public Use
  Company Number: PR-SA-2020SA373588

PATIENT

DRUGS (1)
  1. ZOLPIDEM TARTRATE. [Suspect]
     Active Substance: ZOLPIDEM TARTRATE
     Indication: SUICIDE ATTEMPT
     Dosage: 90 DF, TOTAL
     Route: 048

REACTIONS (16)
  - Renal impairment [Recovered/Resolved]
  - Oliguria [Recovered/Resolved]
  - Petechiae [Recovered/Resolved]
  - Hyperhidrosis [Recovered/Resolved]
  - Metabolic acidosis [Recovered/Resolved]
  - Fluid overload [Recovered/Resolved]
  - Seizure [Recovered/Resolved]
  - Disorganised speech [Recovered/Resolved]
  - Blood urea increased [Recovered/Resolved]
  - Blood creatinine increased [Recovered/Resolved]
  - Intentional overdose [Recovered/Resolved]
  - Conjunctival haemorrhage [Recovered/Resolved]
  - Renal failure [Recovered/Resolved]
  - Rhabdomyolysis [Recovered/Resolved]
  - Blood creatine phosphokinase increased [Recovered/Resolved]
  - Disorientation [Recovered/Resolved]
